FAERS Safety Report 13869997 (Version 3)
Quarter: 2017Q4

REPORT INFORMATION
  Report Type: Spontaneous
  Country: US (occurrence: US)
  Receive Date: 20170815
  Receipt Date: 20171009
  Transmission Date: 20180320
  Serious: Yes (Other)
  Sender: FDA-Public Use
  Company Number: US-PFIZER INC-2017348520

PATIENT
  Age: 62 Year
  Sex: Female
  Weight: 72 kg

DRUGS (4)
  1. EFFEXOR XR [Suspect]
     Active Substance: VENLAFAXINE HYDROCHLORIDE
     Indication: DIZZINESS
     Dosage: 75 MG, 1X/DAY
     Route: 048
     Dates: start: 1997, end: 1997
  2. EFFEXOR XR [Suspect]
     Active Substance: VENLAFAXINE HYDROCHLORIDE
     Indication: ANXIETY
     Dosage: UNK
     Dates: start: 199803
  3. EFFEXOR XR [Suspect]
     Active Substance: VENLAFAXINE HYDROCHLORIDE
     Indication: DISTURBANCE IN ATTENTION
     Dosage: 75 MG, UNK
     Dates: start: 2014, end: 2014
  4. EFFEXOR XR [Suspect]
     Active Substance: VENLAFAXINE HYDROCHLORIDE
     Dosage: 125 MG, UNK (^THINKS THEY ADDED A 37.5MG CAPSULE TO THE 75MG^)
     Dates: start: 2014, end: 2014

REACTIONS (4)
  - Polychondritis [Not Recovered/Not Resolved]
  - Drug ineffective [Unknown]
  - Weight increased [Unknown]
  - Body height decreased [Unknown]

NARRATIVE: CASE EVENT DATE: 1997
